FAERS Safety Report 13476351 (Version 1)
Quarter: 2017Q2

REPORT INFORMATION
  Report Type: Spontaneous
  Country: US (occurrence: US)
  Receive Date: 20170425
  Receipt Date: 20170425
  Transmission Date: 20170830
  Serious: No
  Sender: FDA-Public Use
  Company Number: US-BAYER-2017-078309

PATIENT
  Age: 94 Year
  Sex: Female
  Weight: 50 kg

DRUGS (5)
  1. CALCIUM COMPLETE [Concomitant]
     Indication: GASTROINTESTINAL DISORDER
     Route: 048
  2. MEMANTINE. [Concomitant]
     Active Substance: MEMANTINE
  3. MULTIVITAMIN [Concomitant]
     Active Substance: VITAMINS
  4. FISH OIL [Concomitant]
     Active Substance: FISH OIL
  5. MIRALAX [Suspect]
     Active Substance: POLYETHYLENE GLYCOL 3350
     Indication: GASTROINTESTINAL DISORDER
     Dosage: 1 DF, ONCE
     Route: 048
     Dates: end: 20170423

REACTIONS (1)
  - Expired product administered [Unknown]
